FAERS Safety Report 10528785 (Version 1)
Quarter: 2014Q4

REPORT INFORMATION
  Report Type: Spontaneous
  Country: US (occurrence: US)
  Receive Date: 20141020
  Receipt Date: 20141020
  Transmission Date: 20150528
  Serious: No
  Sender: FDA-Public Use
  Company Number: US-ENDO PHARMACEUTICALS INC.-CARI20130013

PATIENT
  Sex: Female

DRUGS (4)
  1. HYDROCODONE BITARTATE AND ACETAMINOPHEN [Suspect]
     Active Substance: ACETAMINOPHEN\HYDROCODONE BITARTRATE
     Indication: PRODUCT USED FOR UNKNOWN INDICATION
     Dosage: UNKNOWN
     Route: 048
  2. CARISOPRODOL TABLETS 350MG [Suspect]
     Active Substance: CARISOPRODOL
     Indication: MUSCLE SPASMS
     Route: 048
  3. CARISOPRODOL TABLETS 350MG [Suspect]
     Active Substance: CARISOPRODOL
     Route: 048
     Dates: end: 2005
  4. CARISOPRODOL TABLETS 350MG [Suspect]
     Active Substance: CARISOPRODOL
     Route: 048
     Dates: start: 2005, end: 2012

REACTIONS (3)
  - Muscle atrophy [Not Recovered/Not Resolved]
  - Inappropriate schedule of drug administration [Unknown]
  - Decreased appetite [Unknown]

NARRATIVE: CASE EVENT DATE: 2003
